FAERS Safety Report 19880019 (Version 1)
Quarter: 2021Q3

REPORT INFORMATION
  Report Type: Spontaneous
  Country: NO (occurrence: NO)
  Receive Date: 20210924
  Receipt Date: 20210924
  Transmission Date: 20211014
  Serious: Yes (Other)
  Sender: FDA-Public Use
  Company Number: NO-PFIZER INC-202101193086

PATIENT
  Age: 70 Year
  Sex: Female

DRUGS (6)
  1. VAGIFEM [Concomitant]
     Active Substance: ESTRADIOL
     Indication: VULVOVAGINAL DRYNESS
     Dosage: 1 TABLET VAGINALLY TWICE A WEEK
     Route: 067
  2. LEVAXIN [Concomitant]
     Active Substance: LEVOTHYROXINE SODIUM
     Indication: HYPOTHYROIDISM
     Dosage: 75 UG, 1X/DAY
     Route: 048
  3. INLYTA [Suspect]
     Active Substance: AXITINIB
     Indication: RENAL CANCER
     Dosage: 5 MG, 2X/DAY
     Route: 048
     Dates: start: 20210115
  4. PARACETAMOL [Concomitant]
     Active Substance: ACETAMINOPHEN
     Indication: PAIN
     Dosage: 500 MG, 3X/DAY (EVERY 8 HOURS)
     Route: 048
  5. INLYTA [Suspect]
     Active Substance: AXITINIB
     Dosage: 3 MG, 2X/DAY
     Route: 048
  6. KEYTRUDA [Suspect]
     Active Substance: PEMBROLIZUMAB
     Indication: RENAL CANCER
     Dosage: 200 MG, EVERY 3 WEEKS
     Route: 042
     Dates: start: 20210115

REACTIONS (3)
  - Adrenal insufficiency [Recovered/Resolved with Sequelae]
  - Corticosteroid binding globulin increased [Recovered/Resolved with Sequelae]
  - Blood corticotrophin increased [Recovered/Resolved with Sequelae]

NARRATIVE: CASE EVENT DATE: 2021
